FAERS Safety Report 11519677 (Version 2)
Quarter: 2015Q3

REPORT INFORMATION
  Report Type: Spontaneous
  Country: IT (occurrence: IT)
  Receive Date: 20150918
  Receipt Date: 20150927
  Transmission Date: 20151125
  Serious: Yes (Hospitalization)
  Sender: FDA-Public Use
  Company Number: IT-JNJFOC-20150910817

PATIENT
  Age: 87 Year
  Sex: Male

DRUGS (9)
  1. MYCOSTATIN [Interacting]
     Active Substance: NYSTATIN
     Indication: OROPHARYNGEAL CANDIDIASIS
     Route: 065
     Dates: start: 20150828, end: 20150902
  2. RABEPRAZOLE SODIUM. [Interacting]
     Active Substance: RABEPRAZOLE SODIUM
     Indication: PRODUCT USED FOR UNKNOWN INDICATION
     Dosage: GASTRO-RESISTANT TABLET
     Route: 048
  3. COUMADIN [Interacting]
     Active Substance: WARFARIN SODIUM
     Indication: ATRIAL FIBRILLATION
     Route: 065
  4. LANOXIN [Concomitant]
     Active Substance: DIGOXIN
     Route: 048
  5. PARACETAMOL [Interacting]
     Active Substance: ACETAMINOPHEN
     Indication: PAIN
     Route: 048
     Dates: start: 20150828, end: 20150902
  6. EZETIMIBE AND SIMVASTATIN [Interacting]
     Active Substance: EZETIMIBE\SIMVASTATIN
     Indication: HYPERCHOLESTEROLAEMIA
     Route: 048
  7. FLUCONAZOLE. [Suspect]
     Active Substance: FLUCONAZOLE
     Indication: OROPHARYNGEAL CANDIDIASIS
     Dosage: POWDER FOR ORAL SUSPENSION
     Route: 048
     Dates: start: 20150828, end: 20150902
  8. PARACETAMOL [Interacting]
     Active Substance: ACETAMINOPHEN
     Route: 048
  9. ENALAPRIL [Concomitant]
     Active Substance: ENALAPRIL
     Route: 048

REACTIONS (2)
  - International normalised ratio increased [Recovered/Resolved]
  - Drug interaction [Recovered/Resolved]

NARRATIVE: CASE EVENT DATE: 20150903
